FAERS Safety Report 7623903-3 (Version None)
Quarter: 2011Q3

REPORT INFORMATION
  Report Type: 
  Country: None (occurrence: None)
  Receive Date: 20110720
  Receipt Date: 20110712
  Transmission Date: 20111222
  Serious: Yes (Hospitalization, Other)
  Sender: FDA-Public Use
  Company Number: US-PFIZER INC-2010082470

PATIENT
  Sex: Male

DRUGS (6)
  1. DILANTIN [Suspect]
     Indication: CONVULSION
     Dosage: 400 MG, 1X/DAY AT NIGHT
     Route: 048
     Dates: start: 20030119
  2. DILANTIN [Suspect]
     Dosage: 500 MG, UNK
     Route: 048
     Dates: start: 20030119
  3. DILANTIN [Suspect]
     Dosage: 100 MG, 3X/DAY
     Route: 048
     Dates: start: 20030114
  4. DILANTIN [Suspect]
     Dosage: 500 MG, UNK
     Route: 017
     Dates: start: 20030120
  5. DILANTIN [Suspect]
     Dosage: 1 G, UNK
     Route: 040
     Dates: start: 20030110
  6. VANTIN [Suspect]
     Dosage: 200 MG, 2X/DAY, 2 TEA-SPOONS
     Route: 048
     Dates: start: 20030207

REACTIONS (16)
  - BRAIN ABSCESS [None]
  - RETINAL ANOMALY CONGENITAL [None]
  - MUSCULAR WEAKNESS [None]
  - PARAESTHESIA [None]
  - HYPERSENSITIVITY [None]
  - BLOOD SMEAR TEST [None]
  - ANGIOEDEMA [None]
  - ENCEPHALITIS [None]
  - DYSPHAGIA [None]
  - RESPIRATORY DISTRESS [None]
  - ENTEROCOCCAL INFECTION [None]
  - CYST [None]
  - ORAL CANDIDIASIS [None]
  - STEVENS-JOHNSON SYNDROME [None]
  - NORMOCHROMIC NORMOCYTIC ANAEMIA [None]
  - DRUG RASH WITH EOSINOPHILIA AND SYSTEMIC SYMPTOMS [None]
